FAERS Safety Report 4379854-3 (Version None)
Quarter: 2004Q2

REPORT INFORMATION
  Report Type: 
  Country: None (occurrence: None)
  Receive Date: 20040617
  Receipt Date: 20040514
  Transmission Date: 20050107
  Serious: Yes (Death, Hospitalization)
  Sender: FDA-Public Use
  Company Number: FR-BRISTOL-MYERS SQUIBB COMPANY-12591293

PATIENT
  Age: 64 Year
  Sex: Male
  Weight: 81 kg

DRUGS (4)
  1. ENDOXAN [Suspect]
     Indication: SMALL CELL LUNG CANCER METASTATIC
     Route: 042
     Dates: start: 20040218, end: 20040220
  2. ETOPOSIDE [Suspect]
     Indication: SMALL CELL LUNG CANCER METASTATIC
     Route: 042
     Dates: start: 20040218, end: 20040220
  3. CISPLATIN [Suspect]
     Indication: SMALL CELL LUNG CANCER METASTATIC
     Route: 042
     Dates: start: 20040218, end: 20040220
  4. FARMORUBICIN [Suspect]
     Indication: SMALL CELL LUNG CANCER METASTATIC
     Route: 042
     Dates: start: 20040218, end: 20040220

REACTIONS (3)
  - AGRANULOCYTOSIS [None]
  - SEPSIS [None]
  - THROMBOCYTOPENIA [None]
